FAERS Safety Report 25801582 (Version 2)
Quarter: 2025Q3

REPORT INFORMATION
  Report Type: Spontaneous
  Country: US (occurrence: US)
  Receive Date: 20250915
  Receipt Date: 20250916
  Transmission Date: 20251021
  Serious: No
  Sender: Vantive US Healthcare
  Company Number: US-VANTIVE-2025VAN004220

PATIENT
  Age: 45 Year
  Sex: Male

DRUGS (1)
  1. DIANEAL FOR PERITONEAL DIALYSIS [Suspect]
     Active Substance: ANHYDROUS DEXTROSE\CALCIUM CHLORIDE\MAGNESIUM CHLORIDE\SODIUM CHLORIDE\SODIUM LACTATE
     Route: 033
     Dates: start: 20250827

REACTIONS (1)
  - Urticaria [Unknown]

NARRATIVE: CASE EVENT DATE: 20250910
